FAERS Safety Report 10689607 (Version 1)
Quarter: 2015Q1

REPORT INFORMATION
  Report Type: Spontaneous
  Country: US (occurrence: US)
  Receive Date: 20150105
  Receipt Date: 20150105
  Transmission Date: 20150720
  Serious: Yes (Other)
  Sender: FDA-Public Use
  Company Number: US-PFIZER INC-2014361671

PATIENT
  Age: 53 Year
  Sex: Female
  Weight: 89 kg

DRUGS (8)
  1. HUMALOG 50/50 [Concomitant]
     Indication: DIABETES MELLITUS
     Dosage: UNK
  2. CHANTIX [Suspect]
     Active Substance: VARENICLINE TARTRATE
     Dosage: UNK, 2X/DAY
     Dates: start: 20140901, end: 20140910
  3. HUMALOG 75-25 [Concomitant]
     Indication: DIABETES MELLITUS
     Dosage: 28 UNIT IN MORNING AND 28 UNIT AT NIGHT
  4. CHANTIX [Suspect]
     Active Substance: VARENICLINE TARTRATE
     Indication: SMOKING CESSATION THERAPY
     Dosage: UNK
  5. ZETIA [Concomitant]
     Active Substance: EZETIMIBE
     Indication: BLOOD CHOLESTEROL INCREASED
     Dosage: 10 MG, 1X/DAY
  6. METOPROLOL [Concomitant]
     Active Substance: METOPROLOL
     Indication: HYPERTENSION
     Dosage: 50 MG, 2X/DAY
  7. CRESTOR [Concomitant]
     Active Substance: ROSUVASTATIN CALCIUM
     Indication: BLOOD CHOLESTEROL INCREASED
     Dosage: 80 MG, 1X/DAY (AT BED TIME)
  8. GLIPIZIDE. [Concomitant]
     Active Substance: GLIPIZIDE
     Indication: DIABETES MELLITUS
     Dosage: UNK

REACTIONS (4)
  - Weight decreased [Unknown]
  - Gallbladder disorder [Unknown]
  - Cerebrovascular accident [Unknown]
  - Drug ineffective [Unknown]
